FAERS Safety Report 5016468-6 (Version None)
Quarter: 2006Q2

REPORT INFORMATION
  Report Type: 
  Country: None (occurrence: None)
  Receive Date: 20060602
  Receipt Date: 20051003
  Transmission Date: 20061013
  Serious: Yes (Other)
  Sender: FDA-Public Use
  Company Number: PHEH2005US10978

PATIENT
  Age: 73 Year
  Sex: Female
  Weight: 57.142 kg

DRUGS (9)
  1. ZOMETA [Suspect]
  2. TOPROL-XL [Concomitant]
  3. COUMADIN [Concomitant]
  4. SINEMET [Concomitant]
  5. HERCEPTIN [Concomitant]
  6. LUMIGAN [Concomitant]
  7. PRILOSEC [Concomitant]
  8. ZELODA [Concomitant]
  9. TAXOTERE [Concomitant]
     Dates: start: 20000201

REACTIONS (27)
  - ACTINOMYCOSIS [None]
  - AORTIC VALVE INCOMPETENCE [None]
  - BONE DEBRIDEMENT [None]
  - BONE DISORDER [None]
  - DENTAL CARIES [None]
  - DILATATION ATRIAL [None]
  - ENDODONTIC PROCEDURE [None]
  - FISTULA [None]
  - HAEMORRHAGE [None]
  - MITRAL VALVE INCOMPETENCE [None]
  - OPEN WOUND [None]
  - OSTECTOMY [None]
  - OSTEOMYELITIS [None]
  - OSTEONECROSIS [None]
  - PAIN [None]
  - PERIODONTITIS [None]
  - PRIMARY SEQUESTRUM [None]
  - PRURITUS [None]
  - PULMONARY VALVE INCOMPETENCE [None]
  - PURULENT DISCHARGE [None]
  - SINUS BRADYCARDIA [None]
  - SINUSITIS [None]
  - SWELLING [None]
  - TOOTH DISORDER [None]
  - TOOTH EXTRACTION [None]
  - TRICUSPID VALVE INCOMPETENCE [None]
  - VENTRICULAR HYPERTROPHY [None]
